FAERS Safety Report 9275622 (Version 1)
Quarter: 2013Q2

REPORT INFORMATION
  Report Type: Spontaneous
  Country: US (occurrence: US)
  Receive Date: 20130507
  Receipt Date: 20130507
  Transmission Date: 20140414
  Serious: Yes (Disabling)
  Sender: FDA-Public Use
  Company Number: US-BAYER-2013-056499

PATIENT
  Sex: Female

DRUGS (1)
  1. AVELOX [Suspect]
     Indication: SINUSITIS
     Dosage: UNK
     Route: 048
     Dates: start: 20110928

REACTIONS (10)
  - Tendonitis [None]
  - Headache [None]
  - Pain [None]
  - Uterine prolapse [None]
  - Hysterectomy [None]
  - Malaise [None]
  - Vomiting [None]
  - Nausea [None]
  - Gait disturbance [None]
  - Pain [None]
